FAERS Safety Report 10065424 (Version 1)
Quarter: 2014Q2

REPORT INFORMATION
  Report Type: Spontaneous
  Country: US (occurrence: US)
  Receive Date: 20140408
  Receipt Date: 20140408
  Transmission Date: 20141212
  Serious: Yes (Hospitalization)
  Sender: FDA-Public Use
  Company Number: US-GLAXOSMITHKLINE-B0983876A

PATIENT
  Age: 39 Year
  Sex: Female

DRUGS (6)
  1. ALBUTEROL [Suspect]
     Indication: BRONCHITIS
     Route: 055
  2. CEFIXIME [Concomitant]
     Indication: BRONCHITIS
     Dosage: 400MG PER DAY
     Route: 048
  3. METHYLPREDNISOLONE [Concomitant]
     Indication: BRONCHITIS
  4. FLUOXETINE [Concomitant]
     Dosage: 20MG PER DAY
  5. AMITRIPTYLINE [Concomitant]
     Dosage: 10MG PER DAY
  6. MULTIVITAMIN [Concomitant]

REACTIONS (13)
  - Paralysis [Recovering/Resolving]
  - Concomitant disease aggravated [Recovering/Resolving]
  - Paralysis [Unknown]
  - Respiratory distress [Unknown]
  - Pain in extremity [Unknown]
  - Muscular weakness [Unknown]
  - Tachycardia [Unknown]
  - Arrhythmia [Unknown]
  - Electrocardiogram U-wave abnormality [Unknown]
  - Blood potassium decreased [Unknown]
  - Pain [Unknown]
  - Hypoaesthesia [Unknown]
  - Muscle spasms [Unknown]
